FAERS Safety Report 16733397 (Version 1)
Quarter: 2019Q3

REPORT INFORMATION
  Report Type: Spontaneous
  Country: PT (occurrence: PT)
  Receive Date: 20190823
  Receipt Date: 20190823
  Transmission Date: 20191005
  Serious: Yes (Other)
  Sender: FDA-Public Use
  Company Number: PT-TEVA-2019-PT-1096234

PATIENT
  Age: 69 Year
  Sex: Male

DRUGS (1)
  1. ENTECAVIR TEVA [Suspect]
     Active Substance: ENTECAVIR
     Indication: HEPATITIS B
     Dosage: 1 MG
     Route: 048
     Dates: start: 20190716, end: 20190731

REACTIONS (4)
  - Nausea [Recovering/Resolving]
  - Ocular icterus [Recovering/Resolving]
  - Dyspepsia [Recovering/Resolving]
  - Product substitution issue [Recovering/Resolving]

NARRATIVE: CASE EVENT DATE: 201907
